FAERS Safety Report 18692130 (Version 1)
Quarter: 2021Q1

REPORT INFORMATION
  Report Type: Report from Study
  Country: PA (occurrence: PA)
  Receive Date: 20210102
  Receipt Date: 20210102
  Transmission Date: 20210419
  Serious: Yes (Life-Threatening)
  Sender: FDA-Public Use
  Company Number: NVSC2020PA347161

PATIENT
  Age: 76 Year
  Sex: Male

DRUGS (1)
  1. EXFORGE HCT [Suspect]
     Active Substance: AMLODIPINE BESYLATE\HYDROCHLOROTHIAZIDE\VALSARTAN
     Indication: PRODUCT USED FOR UNKNOWN INDICATION
     Dosage: UNK (STARTED MINIMUM 1 YEAR AGO)
     Route: 065

REACTIONS (4)
  - Blood pressure increased [Unknown]
  - Gastrointestinal disorder [Unknown]
  - Near death experience [Unknown]
  - Bladder disorder [Unknown]
